FAERS Safety Report 7366343-7 (Version None)
Quarter: 2011Q1

REPORT INFORMATION
  Report Type: 
  Country: None (occurrence: None)
  Receive Date: 20110310
  Receipt Date: 20110224
  Transmission Date: 20110831
  Serious: Yes (Other)
  Sender: FDA-Public Use
  Company Number: 028402

PATIENT
  Sex: Female
  Weight: 97 kg

DRUGS (6)
  1. CLARITIN-D [Concomitant]
  2. CERTOLIZUMAB PEGOL [Suspect]
     Indication: CROHN'S DISEASE
     Dosage: 1X/2 WEEKS SUCUTANEOUS), 400 MG 1X/4 SUCUTANEOUS)
     Route: 058
     Dates: start: 20100503
  3. CERTOLIZUMAB PEGOL [Suspect]
     Indication: CROHN'S DISEASE
     Dosage: 1X/2 WEEKS SUCUTANEOUS), 400 MG 1X/4 SUCUTANEOUS)
     Route: 058
     Dates: start: 20100308, end: 20100405
  4. NAPROXEN [Concomitant]
  5. BECOTAL FORTE MIT VITAMIN B12 [Concomitant]
  6. ESTRADIOL [Concomitant]

REACTIONS (2)
  - ORAL CANDIDIASIS [None]
  - TONGUE ULCERATION [None]
